FAERS Safety Report 15756015 (Version 1)
Quarter: 2018Q4

REPORT INFORMATION
  Report Type: Other
  Country: ES (occurrence: ES)
  Receive Date: 20181224
  Receipt Date: 20181224
  Transmission Date: 20190205
  Serious: Yes (Hospitalization)
  Sender: FDA-Public Use
  Company Number: ES-CELLTRION INC.-2018ES024656

PATIENT

DRUGS (4)
  1. INFLIXIMAB (UNKNOWN) [Suspect]
     Active Substance: INFLIXIMAB
     Indication: CROHN^S DISEASE
     Dosage: 5 MG/KG, 8 WEEK, LYOPHILIZED POWDER
     Route: 042
     Dates: start: 201602, end: 201602
  2. INFLIXIMAB (UNKNOWN) [Suspect]
     Active Substance: INFLIXIMAB
     Dosage: 5 MG/KG, 4 WEEK, LYOPHILIZED POWDER
     Route: 042
     Dates: start: 201610, end: 201610
  3. AZATHIOPRINE. [Suspect]
     Active Substance: AZATHIOPRINE
     Indication: CROHN^S DISEASE
     Dosage: UNK
     Route: 065
     Dates: start: 201601
  4. INFLIXIMAB (UNKNOWN) [Suspect]
     Active Substance: INFLIXIMAB
     Dosage: 5 MG/KG, 4 WEEK, LYOPHILIZED POWDER
     Route: 042
     Dates: start: 201802, end: 201802

REACTIONS (4)
  - Drug effect decreased [Unknown]
  - Crohn^s disease [Unknown]
  - Product use issue [Unknown]
  - Off label use [Unknown]

NARRATIVE: CASE EVENT DATE: 201610
